FAERS Safety Report 6144423-1 (Version None)
Quarter: 2009Q2

REPORT INFORMATION
  Report Type: 
  Country: None (occurrence: None)
  Receive Date: 20090406
  Receipt Date: 20090326
  Transmission Date: 20091009
  Serious: Yes (Hospitalization)
  Sender: FDA-Public Use
  Company Number: US-JNJFOC-20090307038

PATIENT
  Age: 19 Year
  Sex: Female

DRUGS (3)
  1. ULTRAM ER [Suspect]
     Indication: EAR INFECTION
     Route: 048
  2. ZITHROMAX [Concomitant]
     Route: 065
  3. XANAX [Concomitant]
     Indication: ANXIETY
     Route: 065

REACTIONS (2)
  - OVERDOSE [None]
  - RESPIRATORY DISTRESS [None]
